FAERS Safety Report 7429621-9 (Version None)
Quarter: 2011Q2

REPORT INFORMATION
  Report Type: 
  Country: None (occurrence: None)
  Receive Date: 20110421
  Receipt Date: 20110418
  Transmission Date: 20111010
  Serious: Yes (Other)
  Sender: FDA-Public Use
  Company Number: B0714001A

PATIENT
  Sex: Female

DRUGS (2)
  1. IMIJECT [Suspect]
     Indication: CLUSTER HEADACHE
     Dosage: 2INJ PER DAY
     Route: 058
     Dates: start: 20110416, end: 20110416
  2. IMIGRANE [Suspect]
     Indication: MIGRAINE
     Dosage: 50MG SINGLE DOSE
     Route: 048
     Dates: start: 20110416, end: 20110416

REACTIONS (3)
  - PARALYSIS [None]
  - APHASIA [None]
  - TRISMUS [None]
